FAERS Safety Report 10080890 (Version 1)
Quarter: 2014Q2

REPORT INFORMATION
  Report Type: Spontaneous
  Country: US (occurrence: US)
  Receive Date: 20140416
  Receipt Date: 20140416
  Transmission Date: 20141212
  Serious: Yes (Other)
  Sender: FDA-Public Use
  Company Number: US-NOVOPROD-406386

PATIENT
  Age: 58 Year
  Sex: Female

DRUGS (2)
  1. NOVOLOG FLEXPEN [Suspect]
     Indication: TYPE 2 DIABETES MELLITUS
     Dosage: 16 UNITS DAILY
     Route: 058
  2. LANTUS [Suspect]
     Indication: TYPE 2 DIABETES MELLITUS
     Dosage: 44 UNITS DAILY
     Route: 058

REACTIONS (2)
  - Cholelithiasis [Not Recovered/Not Resolved]
  - Blood glucose increased [Unknown]
